FAERS Safety Report 6738765-6 (Version None)
Quarter: 2010Q2

REPORT INFORMATION
  Report Type: 
  Country: None (occurrence: None)
  Receive Date: 20100524
  Receipt Date: 20100514
  Transmission Date: 20101027
  Serious: Yes (Other)
  Sender: FDA-Public Use
  Company Number: US-JNJCH-2010012163

PATIENT
  Age: 3 Year
  Sex: Male
  Weight: 17.7 kg

DRUGS (4)
  1. CHILDREN'S ZYRTEC ALLERGY [Suspect]
     Indication: HYPERSENSITIVITY
     Dosage: TEXT:HALF TEASPOONFUL THREE TIMES
     Route: 048
  2. TYLENOL CHILDRENS [Suspect]
     Indication: PYREXIA
     Dosage: TEXT:AS DIRECTED AS NEEDED
     Route: 048
  3. SINGULAIR ^DIECKMANN^ [Concomitant]
     Dosage: TEXT:UNKNOWN
     Route: 065
  4. VITAMINS [Concomitant]
     Dosage: TEXT:UNKNOWN
     Route: 065

REACTIONS (2)
  - AUTISM [None]
  - PRODUCT QUALITY ISSUE [None]
